FAERS Safety Report 7914513-9 (Version None)
Quarter: 2011Q4

REPORT INFORMATION
  Report Type: 
  Country: None (occurrence: None)
  Receive Date: 20111115
  Receipt Date: 20111101
  Transmission Date: 20120403
  Serious: Yes (Life-Threatening, Hospitalization, Other)
  Sender: FDA-Public Use
  Company Number: PHHY2011CH098382

PATIENT
  Age: 71 Year
  Sex: Female

DRUGS (16)
  1. TEGRETOL [Suspect]
     Dosage: UNK
     Dates: start: 20110902, end: 20110903
  2. LEVOTHYROXINE SODIUM [Suspect]
     Dosage: 0.05 MG, DAILY
     Route: 048
  3. DIOVAN [Suspect]
     Indication: HYPERTENSION
     Dosage: 40 MG, UNK
     Dates: end: 20110814
  4. KEPPRA [Concomitant]
     Dosage: 1 DF, BID
     Dates: start: 20110906, end: 20110907
  5. KEPPRA [Concomitant]
     Dosage: 1 DF, TID
     Dates: start: 20110903, end: 20110905
  6. URBANYL [Concomitant]
     Dosage: 5 MG, UNK
     Route: 048
     Dates: start: 20110822, end: 20110823
  7. TEGRETOL [Suspect]
     Dosage: 200 MG, DAILY
     Route: 048
     Dates: start: 20110826, end: 20110901
  8. NORVASC [Concomitant]
     Dosage: 5 MG, DAILY
     Route: 048
     Dates: start: 20110901, end: 20110906
  9. KEPPRA [Concomitant]
     Dosage: 1.5 DF, (1-0-0.5)
     Dates: start: 20110908
  10. HYGROTON [Suspect]
     Dosage: 25 MG, UNK
     Route: 048
     Dates: start: 20110819
  11. TEGRETOL [Suspect]
     Dosage: 200 MG, BID
     Route: 048
     Dates: start: 20110823, end: 20110825
  12. KEPPRA [Concomitant]
     Dosage: 1 DF, BID
     Route: 048
     Dates: start: 20110901, end: 20110902
  13. TEGRETOL [Suspect]
     Indication: EPILEPSY
     Dosage: 200 MG, BID
     Route: 048
     Dates: start: 20110815, end: 20110819
  14. DIOVAN [Suspect]
     Dosage: 80 MG, BID
     Dates: start: 20110814
  15. URBANYL [Concomitant]
     Dosage: 10 MG, UNK
     Dates: start: 20110824
  16. AUGMENTIN [Concomitant]
     Dosage: 1 G, BID
     Route: 048
     Dates: start: 20110821, end: 20110826

REACTIONS (13)
  - HYPOTONIA [None]
  - HYPONATRAEMIA [None]
  - MALAISE [None]
  - BLOOD PRESSURE DECREASED [None]
  - BLOOD OSMOLARITY DECREASED [None]
  - FATIGUE [None]
  - DIZZINESS [None]
  - CONVULSION [None]
  - SYNCOPE [None]
  - FEELING ABNORMAL [None]
  - MEMORY IMPAIRMENT [None]
  - VOMITING [None]
  - BLOOD PRESSURE INADEQUATELY CONTROLLED [None]
